APPROVED DRUG PRODUCT: PIROXICAM
Active Ingredient: PIROXICAM
Strength: 10MG
Dosage Form/Route: CAPSULE;ORAL
Application: A074287 | Product #001
Applicant: WATSON LABORATORIES INC
Approved: May 16, 1996 | RLD: No | RS: No | Type: DISCN